FAERS Safety Report 7680761-9 (Version None)
Quarter: 2011Q3

REPORT INFORMATION
  Report Type: 
  Country: None (occurrence: None)
  Receive Date: 20110812
  Receipt Date: 20110616
  Transmission Date: 20111222
  Serious: Yes (Other)
  Sender: FDA-Public Use
  Company Number: AU-BAYER-2011-051604

PATIENT
  Age: 44 Year
  Sex: Female

DRUGS (2)
  1. MIRENA [Suspect]
     Indication: MENORRHAGIA
     Dosage: UNK
     Route: 015
     Dates: start: 20100501, end: 20110501
  2. MIRENA [Suspect]
     Indication: UTERINE LEIOMYOMA
     Dosage: UNK, CONT
     Route: 015
     Dates: start: 20110501

REACTIONS (2)
  - DEVICE DISLOCATION [None]
  - CANDIDIASIS [None]
